FAERS Safety Report 8355993-7 (Version None)
Quarter: 2012Q2

REPORT INFORMATION
  Report Type: 
  Country: None (occurrence: None)
  Receive Date: 20120514
  Receipt Date: 20120504
  Transmission Date: 20120825
  Serious: Yes (Hospitalization, Other)
  Sender: FDA-Public Use
  Company Number: US-JNJFOC-20120300806

PATIENT
  Sex: Female
  Weight: 68.95 kg

DRUGS (3)
  1. DURAGESIC-100 [Suspect]
     Indication: OSTEOARTHRITIS
     Dosage: 100UG/HR+ 100UG/HR
     Route: 062
  2. FENTANYL CITRATE [Suspect]
     Indication: OSTEOARTHRITIS
     Dosage: 100 UG/HR+100 UG/HR
     Route: 062
  3. ARTHROTEC [Suspect]
     Indication: ARTHRITIS
     Route: 065

REACTIONS (4)
  - OSTEOARTHRITIS [None]
  - PERONEAL NERVE PALSY [None]
  - ATRIAL FIBRILLATION [None]
  - HIP SURGERY [None]
